FAERS Safety Report 20839448 (Version 2)
Quarter: 2022Q2

REPORT INFORMATION
  Report Type: Report from Study
  Country: CA (occurrence: CA)
  Receive Date: 20220517
  Receipt Date: 20220523
  Transmission Date: 20220721
  Serious: Yes (Other)
  Sender: FDA-Public Use
  Company Number: CA-MYLANLABS-2022M1013582

PATIENT
  Sex: Female

DRUGS (3)
  1. HULIO [Suspect]
     Active Substance: ADALIMUMAB-FKJP
     Indication: Rheumatoid arthritis
     Dosage: UNK
  2. HULIO [Suspect]
     Active Substance: ADALIMUMAB-FKJP
     Dosage: 40 MILLIGRAM, QW ( 40 MG, EVERY 7 DAYS)
     Dates: end: 20220410
  3. HULIO [Suspect]
     Active Substance: ADALIMUMAB-FKJP
     Dosage: 40 MILLIGRAM, 14

REACTIONS (6)
  - Rheumatoid arthritis [Unknown]
  - Product dose omission issue [Unknown]
  - Urinary tract infection [Unknown]
  - Headache [Unknown]
  - Nausea [Unknown]
  - Peripheral swelling [Unknown]
